FAERS Safety Report 5490638-5 (Version None)
Quarter: 2007Q4

REPORT INFORMATION
  Report Type: 
  Country: None (occurrence: None)
  Receive Date: 20071019
  Receipt Date: 20071012
  Transmission Date: 20080405
  Serious: Yes (Other)
  Sender: FDA-Public Use
  Company Number: CA-ASTRAZENECA-2007UW23936

PATIENT
  Age: 74 Year
  Sex: Female

DRUGS (6)
  1. ATACAND [Suspect]
     Route: 048
  2. ARIMIDEX [Concomitant]
     Route: 048
  3. LARBUS [Concomitant]
  4. METFORMIN HCL [Concomitant]
     Route: 048
  5. NOVASEN [Concomitant]
     Route: 048
  6. NOVORAPID [Concomitant]

REACTIONS (1)
  - PARALYSIS [None]
